FAERS Safety Report 8210690-3 (Version None)
Quarter: 2012Q1

REPORT INFORMATION
  Report Type: 
  Country: None (occurrence: None)
  Receive Date: 20120314
  Receipt Date: 20120305
  Transmission Date: 20120608
  Serious: Yes (Hospitalization, Other)
  Sender: FDA-Public Use
  Company Number: US-ASTRAZENECA-2011SE11740

PATIENT
  Age: 59 Year
  Sex: Female

DRUGS (28)
  1. NEXIUM [Suspect]
     Indication: GASTROOESOPHAGEAL REFLUX DISEASE
     Route: 048
  2. SIMVASTATIN [Concomitant]
     Indication: BLOOD CHOLESTEROL INCREASED
  3. PREDNISONE TAB [Concomitant]
     Indication: UVEITIS
  4. SEREVENT [Concomitant]
  5. PHENTERMINE [Concomitant]
  6. FLUOXETINE HCL [Concomitant]
     Indication: FIBROMYALGIA
  7. LYRICA [Concomitant]
  8. MULTI-VITAMINS [Concomitant]
     Dosage: 1 TABLET DAILY
  9. BENEFIBER [Concomitant]
     Dosage: 1 TBS DAILY
  10. AMITRIPTYLINE HCL [Concomitant]
     Indication: BACK PAIN
     Dosage: UP TO 150 MG DAILY AS NEEDED
  11. AMITRIPTYLINE HCL [Concomitant]
     Indication: SPINAL OSTEOARTHRITIS
     Dosage: UP TO 150 MG DAILY AS NEEDED
  12. AMITRIPTYLINE HCL [Concomitant]
     Indication: OSTEOARTHRITIS
     Dosage: UP TO 150 MG DAILY AS NEEDED
  13. PREDNISONE TAB [Concomitant]
     Indication: MACULAR OEDEMA
  14. ALBUTEROL [Concomitant]
     Indication: ASTHMA
     Dosage: 2 PUFFS, 2 TIMES DAILY AS NEEDED
  15. BOSWELLIA [Concomitant]
     Dosage: 85 % HERBAL 3 TABLETS DAILY AS NEEDED
  16. SYMBICORT [Concomitant]
     Indication: CHRONIC OBSTRUCTIVE PULMONARY DISEASE
     Dosage: 160/4.5 2 PUFFS, 2 TIMES DAILY
  17. METFORMIN HCL [Concomitant]
     Indication: DIABETES MELLITUS
  18. VALTREX [Concomitant]
     Indication: TINNITUS
     Dosage: AS NEEDED
  19. RESTASIS [Concomitant]
  20. NEXIUM [Suspect]
     Route: 048
  21. HYDROCODON-ACETAMINOPHEN [Concomitant]
     Indication: PAIN
     Dosage: 5-500 MG AS NEEDED
  22. VERAMYST [Concomitant]
     Indication: CHRONIC SINUSITIS
     Route: 045
     Dates: start: 20111001
  23. VALTREX [Concomitant]
     Indication: ORAL HERPES
     Dosage: AS NEEDED
  24. VIOXX [Concomitant]
  25. PREMARIN [Concomitant]
  26. IBUPROFEN [Concomitant]
     Dosage: 600 MG 2/3 TIMES DAILY
  27. FLAX OIL [Concomitant]
  28. CALCIUM CARBONATE [Concomitant]

REACTIONS (14)
  - CLOSTRIDIUM DIFFICILE COLITIS [None]
  - CARPAL TUNNEL SYNDROME [None]
  - NASAL SEPTUM DEVIATION [None]
  - DEAFNESS [None]
  - URINARY TRACT INFECTION [None]
  - SINUSITIS [None]
  - ADVERSE EVENT [None]
  - BREAST MASS [None]
  - ORAL DISORDER [None]
  - DIABETES MELLITUS [None]
  - EMPHYSEMA [None]
  - PNEUMONIA [None]
  - BLOOD CHOLESTEROL INCREASED [None]
  - BRONCHITIS [None]
